FAERS Safety Report 7266519-3 (Version None)
Quarter: 2011Q1

REPORT INFORMATION
  Report Type: 
  Country: None (occurrence: None)
  Receive Date: 20110131
  Receipt Date: 20110125
  Transmission Date: 20110831
  Serious: Yes (Other)
  Sender: FDA-Public Use
  Company Number: US-B.I. PHARMACEUTICALS,INC./RIDGEFIELD-2010-BP-15181BP

PATIENT
  Sex: Female

DRUGS (8)
  1. POTASSIUM CL MICRO [Concomitant]
     Dosage: 40 MEQ
  2. WELLBUTRIN [Concomitant]
     Dosage: 300 MG
  3. METOPROLOL TARTRATE [Concomitant]
     Dosage: 50 MG
  4. PRADAXA [Suspect]
     Indication: ATRIAL FIBRILLATION
     Dosage: 300 MG
     Route: 048
     Dates: start: 20101207
  5. PRADAXA [Suspect]
     Indication: ATRIAL FLUTTER
  6. XANAX [Concomitant]
     Dosage: 3 MG
  7. ASPIRIN [Concomitant]
     Indication: CARDIOVASCULAR EVENT PROPHYLAXIS
     Dosage: 81 MG
     Route: 048
     Dates: start: 19950101
  8. AMIODARONE [Concomitant]
     Dosage: 800 MG

REACTIONS (3)
  - PALPITATIONS [None]
  - ATRIAL FIBRILLATION [None]
  - ATRIAL FLUTTER [None]
